FAERS Safety Report 7013585-6 (Version None)
Quarter: 2010Q3

REPORT INFORMATION
  Report Type: 
  Country: None (occurrence: None)
  Receive Date: 20100924
  Receipt Date: 20100916
  Transmission Date: 20110219
  Serious: Yes (Disabling)
  Sender: FDA-Public Use
  Company Number: GXKR2010DK10596

PATIENT
  Sex: Male
  Weight: 89 kg

DRUGS (2)
  1. SIMVASTATIN (NGX) [Suspect]
     Indication: HYPERCHOLESTEROLAEMIA
     Route: 048
     Dates: start: 20061206, end: 20100902
  2. METOPROLOL SUCCINATE [Concomitant]
     Indication: HYPERTENSION
     Dosage: 100 MILLIGRAM(S)
     Route: 048
     Dates: start: 20040630

REACTIONS (3)
  - ARTHRALGIA [None]
  - PARAESTHESIA [None]
  - SYNOVITIS [None]
